FAERS Safety Report 5352534-3 (Version None)
Quarter: 2007Q2

REPORT INFORMATION
  Report Type: 
  Country: None (occurrence: None)
  Receive Date: 20070607
  Receipt Date: 20070607
  Transmission Date: 20071010
  Serious: Yes (Hospitalization)
  Sender: FDA-Public Use
  Company Number: None

PATIENT
  Age: 57 Year
  Sex: Male

DRUGS (2)
  1. FUROSEMIDE [Suspect]
     Indication: CARDIAC FAILURE CONGESTIVE
     Dosage: 160MG EVERY DAY PO
     Route: 048
     Dates: start: 20060112
  2. BUMETANIDE [Suspect]
     Dosage: 1MG BID PO
     Route: 048

REACTIONS (5)
  - FATIGUE [None]
  - HYPOVOLAEMIA [None]
  - LETHARGY [None]
  - NAUSEA [None]
  - VOMITING [None]
